FAERS Safety Report 4607166-9 (Version None)
Quarter: 2005Q1

REPORT INFORMATION
  Report Type: 
  Country: None (occurrence: None)
  Receive Date: 20050311
  Receipt Date: 20050311
  Transmission Date: 20050727
  Serious: Yes (Hospitalization, Other)
  Sender: FDA-Public Use
  Company Number: None

PATIENT
  Age: 65 Year
  Sex: Female
  Weight: 43 kg

DRUGS (11)
  1. TEQUIN [Suspect]
     Dosage: 400 MG IV QD
     Route: 042
     Dates: start: 20041009, end: 20041011
  2. PEPCID [Concomitant]
  3. REGLAN [Concomitant]
  4. LASIX [Concomitant]
  5. TRIDIL [Concomitant]
  6. LOVENOX [Concomitant]
  7. PLAVIX [Concomitant]
  8. DOBUTREX [Concomitant]
  9. COREG [Concomitant]
  10. VASOTEC [Concomitant]
  11. INSULIN [Concomitant]

REACTIONS (1)
  - HYPOGLYCAEMIA [None]
